FAERS Safety Report 4303600-2 (Version None)
Quarter: 2004Q1

REPORT INFORMATION
  Report Type: 
  Country: None (occurrence: None)
  Receive Date: 20040223
  Receipt Date: 20040217
  Transmission Date: 20041129
  Serious: Yes (Disabling, Congenital Anomaly)
  Sender: FDA-Public Use
  Company Number: MK200402-0162-1

PATIENT
  Age: 33 Year
  Sex: Female

DRUGS (4)
  1. ANAFRANIL [Suspect]
     Dosage: 25 MG, DAILY
     Dates: start: 20030810
  2. REMERON [Suspect]
     Dates: start: 20030810, end: 20031013
  3. LORAZEPAM [Suspect]
     Dates: start: 20030810, end: 20031006
  4. CLORAZEPATE DIPOTASSIUM [Suspect]
     Dosage: 100 MG DAILY
     Dates: start: 20030901, end: 20031017

REACTIONS (2)
  - FALLOT'S TETRALOGY [None]
  - MATERNAL DRUGS AFFECTING FOETUS [None]
